FAERS Safety Report 4900981-3 (Version None)
Quarter: 2006Q1

REPORT INFORMATION
  Report Type: 
  Country: None (occurrence: None)
  Receive Date: 20060113
  Receipt Date: 20050915
  Transmission Date: 20060701
  Serious: No
  Sender: FDA-Public Use
  Company Number: 2005SP000997

PATIENT
  Age: 28 Year
  Sex: Female
  Weight: 86.1834 kg

DRUGS (2)
  1. LUNESTA [Suspect]
     Indication: INSOMNIA
     Dosage: 2 MG; HS;ORAL
     Route: 048
     Dates: start: 20050101, end: 20050101
  2. LUNESTA [Suspect]
     Indication: INSOMNIA
     Dosage: 2 MG; HS;ORAL
     Route: 048
     Dates: start: 20050406, end: 20050406

REACTIONS (4)
  - ABDOMINAL PAIN [None]
  - MIGRAINE [None]
  - NAUSEA [None]
  - VOMITING [None]
